FAERS Safety Report 20542423 (Version 2)
Quarter: 2023Q2

REPORT INFORMATION
  Report Type: Spontaneous
  Country: US (occurrence: US)
  Receive Date: 20220302
  Receipt Date: 20230531
  Transmission Date: 20230721
  Serious: Yes (Other)
  Sender: FDA-Public Use
  Company Number: US-INCYTE CORPORATION-2022IN001904

PATIENT

DRUGS (3)
  1. JAKAFI [Suspect]
     Active Substance: RUXOLITINIB
     Indication: Polycythaemia vera
     Dosage: 10 MILLIGRAM, BID
     Route: 048
     Dates: start: 20211202
  2. JAKAFI [Suspect]
     Active Substance: RUXOLITINIB
     Dosage: 20 MILLIGRAM, BID
     Route: 048
     Dates: start: 202301
  3. SOTALOL [Suspect]
     Active Substance: SOTALOL
     Indication: Product used for unknown indication
     Dosage: UNK
     Route: 065

REACTIONS (7)
  - Deafness unilateral [Unknown]
  - Bradycardia [Unknown]
  - Stress [Unknown]
  - Dizziness [Unknown]
  - Vertigo [Unknown]
  - Contusion [Recovered/Resolved]
  - Haematoma [Unknown]
